FAERS Safety Report 19306360 (Version 2)
Quarter: 2021Q2

REPORT INFORMATION
  Report Type: Spontaneous
  Country: JP (occurrence: JP)
  Receive Date: 20210526
  Receipt Date: 20210614
  Transmission Date: 20210717
  Serious: Yes (Death, Life-Threatening, Other)
  Sender: FDA-Public Use
  Company Number: JP-PFIZER INC-2021542791

PATIENT
  Age: 26 Year
  Sex: Male

DRUGS (9)
  1. CISPLATIN. [Suspect]
     Active Substance: CISPLATIN
     Dosage: UNK, CYCLIC
     Dates: start: 201802
  2. CISPLATIN. [Suspect]
     Active Substance: CISPLATIN
     Indication: GERM CELL NEOPLASM
     Dosage: UNK, CYCLIC
     Dates: start: 201711
  3. PACLITAXEL. [Suspect]
     Active Substance: PACLITAXEL
     Indication: GERM CELL NEOPLASM
     Dosage: UNK, CYCLIC
     Dates: start: 201802
  4. BLEOMYCIN [Suspect]
     Active Substance: BLEOMYCIN SULFATE
     Indication: GERM CELL CANCER
     Dosage: UNK, CYCLIC
     Dates: start: 201711
  5. ETOPOSIDE. [Suspect]
     Active Substance: ETOPOSIDE
     Indication: GERM CELL CANCER
     Dosage: UNK, CYCLIC
     Dates: start: 201711
  6. VINBLASTINE [Suspect]
     Active Substance: VINBLASTINE
     Indication: GERM CELL CANCER
     Dosage: UNK, CYCLIC
     Dates: start: 201803
  7. CISPLATIN. [Suspect]
     Active Substance: CISPLATIN
     Dosage: UNK, CYCLIC
     Dates: start: 201803
  8. IFOSFAMIDE. [Suspect]
     Active Substance: IFOSFAMIDE
     Dosage: UNK, CYCLIC
     Dates: start: 201803
  9. IFOSFAMIDE. [Suspect]
     Active Substance: IFOSFAMIDE
     Indication: GERM CELL CANCER
     Dosage: UNK, CYCLIC
     Dates: start: 201802

REACTIONS (2)
  - Second primary malignancy [Fatal]
  - Histiocytic sarcoma [Fatal]

NARRATIVE: CASE EVENT DATE: 2018
